FAERS Safety Report 7893449-6 (Version None)
Quarter: 2011Q4

REPORT INFORMATION
  Report Type: 
  Country: None (occurrence: None)
  Receive Date: 20111104
  Receipt Date: 20111020
  Transmission Date: 20120403
  Serious: Yes (Death)
  Sender: FDA-Public Use
  Company Number: PL-ROCHE-1006135

PATIENT
  Age: 76 Year
  Sex: Female

DRUGS (4)
  1. PREDNISONE [Concomitant]
     Indication: B-CELL LYMPHOMA
  2. MABTHERA [Suspect]
     Indication: B-CELL LYMPHOMA
  3. VINCRISTINE [Concomitant]
     Indication: B-CELL LYMPHOMA
  4. CYCLOPHOSPHAMIDE [Concomitant]
     Indication: B-CELL LYMPHOMA

REACTIONS (2)
  - DEATH [None]
  - MALAISE [None]
